FAERS Safety Report 12895194 (Version 1)
Quarter: 2016Q4

REPORT INFORMATION
  Report Type: Report from Study
  Country: MX (occurrence: MX)
  Receive Date: 20161029
  Receipt Date: 20161029
  Transmission Date: 20170207
  Serious: Yes (Other)
  Sender: FDA-Public Use
  Company Number: MX-BRISTOL-MYERS SQUIBB COMPANY-BMS-2016-090084

PATIENT
  Age: 73 Year
  Sex: Female
  Weight: 56 kg

DRUGS (1)
  1. DASATINIB [Suspect]
     Active Substance: DASATINIB
     Indication: CHRONIC MYELOID LEUKAEMIA
     Dosage: 50 MG, QD
     Route: 048
     Dates: start: 20150615, end: 20161005

REACTIONS (5)
  - Pleural effusion [Unknown]
  - Haematotoxicity [Unknown]
  - Pulmonary hypertension [Unknown]
  - Mitral valve incompetence [Unknown]
  - Treatment failure [Unknown]

NARRATIVE: CASE EVENT DATE: 201512
